FAERS Safety Report 6359773-3 (Version None)
Quarter: 2009Q3

REPORT INFORMATION
  Report Type: 
  Country: None (occurrence: None)
  Receive Date: 20090917
  Receipt Date: 20090914
  Transmission Date: 20100115
  Serious: Yes (Other)
  Sender: FDA-Public Use
  Company Number: A0800373A

PATIENT
  Age: 65 Year
  Sex: Female

DRUGS (1)
  1. ALLI [Suspect]
     Dates: start: 20090711, end: 20090725

REACTIONS (8)
  - ABDOMINAL PAIN [None]
  - DIVERTICULITIS [None]
  - FAECES DISCOLOURED [None]
  - FREQUENT BOWEL MOVEMENTS [None]
  - NAUSEA [None]
  - PAIN [None]
  - STEATORRHOEA [None]
  - TREATMENT NONCOMPLIANCE [None]
